FAERS Safety Report 10209398 (Version 1)
Quarter: 2014Q2

REPORT INFORMATION
  Report Type: Spontaneous
  Country: US (occurrence: US)
  Receive Date: 20140531
  Receipt Date: 20140531
  Transmission Date: 20141212
  Serious: No
  Sender: FDA-Public Use
  Company Number: US-009507513-1405USA014386

PATIENT
  Age: 55 Year
  Sex: Male

DRUGS (6)
  1. JANUVIA [Suspect]
     Indication: TYPE 2 DIABETES MELLITUS
     Dosage: UNK
     Route: 048
     Dates: start: 20140501
  2. METFORMIN [Concomitant]
  3. INSULIN GLARGINE [Concomitant]
  4. LISINOPRIL [Concomitant]
  5. SIMVASTATIN TABLETS, USP [Concomitant]
  6. ASPIRIN [Concomitant]

REACTIONS (5)
  - Sluggishness [Recovered/Resolved]
  - Dizziness [Recovered/Resolved]
  - Nausea [Recovered/Resolved]
  - Vomiting [Recovered/Resolved]
  - Back pain [Recovered/Resolved]
